FAERS Safety Report 11685504 (Version 1)
Quarter: 2015Q4

REPORT INFORMATION
  Report Type: Report from Study
  Country: NL (occurrence: NL)
  Receive Date: 20151030
  Receipt Date: 20151030
  Transmission Date: 20160304
  Serious: Yes (Death, Hospitalization, Other)
  Sender: FDA-Public Use
  Company Number: PHHY2015NL127867

PATIENT
  Age: 72 Year
  Sex: Male
  Weight: 83.5 kg

DRUGS (6)
  1. TRAMETINIB [Suspect]
     Active Substance: TRAMETINIB
     Indication: METASTATIC MALIGNANT MELANOMA
     Dosage: 2 MG, QD
     Route: 048
     Dates: start: 20140612, end: 20150827
  2. DABRAFENIB [Suspect]
     Active Substance: DABRAFENIB
     Indication: METASTATIC MALIGNANT MELANOMA
     Dosage: 150 MG, BID
     Route: 048
     Dates: start: 20140612, end: 20150827
  3. TRAMETINIB [Suspect]
     Active Substance: TRAMETINIB
     Dosage: 2 MG, QD
     Route: 048
     Dates: start: 20150912
  4. LEVETIRACETAM. [Concomitant]
     Active Substance: LEVETIRACETAM
     Indication: PRODUCT USED FOR UNKNOWN INDICATION
     Dosage: 500 MG, BID
     Route: 042
  5. DABRAFENIB [Suspect]
     Active Substance: DABRAFENIB
     Dosage: 150 MG, BID
     Route: 048
     Dates: start: 20150912
  6. DEXAMETASON [Concomitant]
     Active Substance: DEXAMETHASONE
     Indication: BRAIN OEDEMA
     Dosage: 4 MG, QD
     Route: 042
     Dates: start: 20150901

REACTIONS (8)
  - Dysarthria [Not Recovered/Not Resolved]
  - Tachypnoea [Unknown]
  - Dysphagia [Not Recovered/Not Resolved]
  - Metastases to central nervous system [Unknown]
  - Respiratory arrest [Fatal]
  - Seizure [Fatal]
  - Coma [Unknown]
  - Brain oedema [Unknown]

NARRATIVE: CASE EVENT DATE: 20150823
